FAERS Safety Report 16069208 (Version 2)
Quarter: 2019Q2

REPORT INFORMATION
  Report Type: Spontaneous
  Country: US (occurrence: US)
  Receive Date: 20190313
  Receipt Date: 20190626
  Transmission Date: 20190711
  Serious: Yes (Death, Hospitalization, Other)
  Sender: FDA-Public Use
  Company Number: US-VIFOR (INTERNATIONAL) INC.-VIT-2019-01716

PATIENT
  Age: 97 Year
  Sex: Female
  Weight: 54.93 kg

DRUGS (9)
  1. PRORENAL VITAMIN [Concomitant]
  2. DOCUSATE [Concomitant]
     Active Substance: DOCUSATE
  3. VELTASSA [Suspect]
     Active Substance: PATIROMER
     Indication: HYPERKALAEMIA
     Route: 048
     Dates: start: 20190201
  4. MIDRIN [Concomitant]
     Active Substance: ACETAMINOPHEN\DICHLORALPHENAZONE\ISOMETHEPTENE
  5. MIRTAZAPINE. [Concomitant]
     Active Substance: MIRTAZAPINE
     Dosage: 1.5 TABLETS ONCE A DAY
  6. RANITIDINE. [Concomitant]
     Active Substance: RANITIDINE
  7. CETIRIZINE [Concomitant]
     Active Substance: CETIRIZINE HYDROCHLORIDE
  8. LEVETIRACETAM. [Concomitant]
     Active Substance: LEVETIRACETAM
  9. METOPROLOL ER SUCCINATE [Concomitant]
     Active Substance: METOPROLOL SUCCINATE

REACTIONS (10)
  - Productive cough [Fatal]
  - Mental disorder [Not Recovered/Not Resolved]
  - Shock symptom [Not Recovered/Not Resolved]
  - Fatigue [Fatal]
  - Hypotension [Not Recovered/Not Resolved]
  - Heart rate increased [Not Recovered/Not Resolved]
  - Dyspnoea [Fatal]
  - Pneumonia [Fatal]
  - Asthenia [Fatal]
  - Hallucination [Not Recovered/Not Resolved]

NARRATIVE: CASE EVENT DATE: 20190203
